FAERS Safety Report 6104785-8 (Version None)
Quarter: 2009Q1

REPORT INFORMATION
  Report Type: 
  Country: None (occurrence: None)
  Receive Date: 20090306
  Receipt Date: 20090221
  Transmission Date: 20090719
  Serious: Yes (Hospitalization)
  Sender: FDA-Public Use
  Company Number: PHHY2009GB06717

PATIENT
  Sex: Female

DRUGS (1)
  1. CLOZARIL [Suspect]
     Indication: SCHIZOPHRENIA
     Dosage: 300 MG DAILY
     Route: 048
     Dates: start: 20080722

REACTIONS (4)
  - CHEST PAIN [None]
  - LOWER RESPIRATORY TRACT INFECTION [None]
  - SCHIZOPHRENIA [None]
  - WHEEZING [None]
